FAERS Safety Report 7668255-8 (Version None)
Quarter: 2011Q3

REPORT INFORMATION
  Report Type: 
  Country: None (occurrence: None)
  Receive Date: 20110808
  Receipt Date: 20101118
  Transmission Date: 20111222
  Serious: No
  Sender: FDA-Public Use
  Company Number: US-BAYER-2010-004482

PATIENT
  Age: 42 Year

DRUGS (1)
  1. CIPRO [Suspect]
     Dosage: 250 MG, BID
     Route: 048
     Dates: start: 20101110, end: 20101117

REACTIONS (1)
  - TENDON PAIN [None]
